FAERS Safety Report 9162905 (Version 1)
Quarter: 2013Q1

REPORT INFORMATION
  Report Type: Spontaneous
  Country: JP (occurrence: None)
  Receive Date: 20130215
  Receipt Date: 20130215
  Transmission Date: 20140127
  Serious: Yes (Other)
  Sender: FDA-Public Use
  Company Number: 2013-01864

PATIENT
  Age: 79 Year
  Sex: Male

DRUGS (1)
  1. IMMUCYST [Suspect]

REACTIONS (1)
  - Epididymitis [None]
